FAERS Safety Report 6641959-1 (Version None)
Quarter: 2010Q1

REPORT INFORMATION
  Report Type: 
  Country: None (occurrence: None)
  Receive Date: 20100319
  Receipt Date: 20100309
  Transmission Date: 20100710
  Serious: Yes (Hospitalization, Other)
  Sender: FDA-Public Use
  Company Number: US-JNJFOC-20100111401

PATIENT
  Sex: Female
  Weight: 82.56 kg

DRUGS (7)
  1. REMICADE [Suspect]
     Indication: CROHN'S DISEASE
     Dosage: 37 INFUSIONS
     Route: 042
  2. REMICADE [Suspect]
     Route: 042
  3. REMICADE [Suspect]
     Dosage: 5 INFUSIONS
     Route: 042
  4. REMICADE [Suspect]
     Dosage: 7 INFUSIONS PRIOR TO BASELINE
     Route: 042
  5. VITAMIN D [Concomitant]
     Indication: CROHN'S DISEASE
  6. XANAX [Concomitant]
     Indication: CROHN'S DISEASE
  7. ANTIDEPRESSANTS [Concomitant]
     Indication: CROHN'S DISEASE

REACTIONS (5)
  - CROHN'S DISEASE [None]
  - DEPRESSION [None]
  - HYPOKALAEMIA [None]
  - IMPAIRED GASTRIC EMPTYING [None]
  - WEIGHT DECREASED [None]
